FAERS Safety Report 12305498 (Version 4)
Quarter: 2016Q3

REPORT INFORMATION
  Report Type: Spontaneous
  Country: US (occurrence: US)
  Receive Date: 20160426
  Receipt Date: 20160707
  Transmission Date: 20161109
  Serious: Yes (Life-Threatening, Hospitalization)
  Sender: FDA-Public Use
  Company Number: US-PFIZER INC-2016173045

PATIENT
  Age: 81 Year
  Sex: Male
  Weight: 111.1 kg

DRUGS (5)
  1. SUTENT [Suspect]
     Active Substance: SUNITINIB MALATE
     Dosage: 50 MG, CYCLIC (TWO WEEKS AND ONE WEEK OFF)
     Route: 048
     Dates: start: 20160324
  2. SUTENT [Suspect]
     Active Substance: SUNITINIB MALATE
     Indication: RENAL CANCER STAGE III
     Dosage: 37.5 MG, CYCLIC (7 WEEKS ON 1 WEEK OFF )
     Route: 048
     Dates: start: 20160225
  3. SUTENT [Suspect]
     Active Substance: SUNITINIB MALATE
     Dosage: 37.5 MG, CYCLIC (DAILY X 14 DAYS THEN 7 DAYS OFF)
     Route: 048
     Dates: start: 20160321
  4. SUTENT [Suspect]
     Active Substance: SUNITINIB MALATE
     Dosage: 50 MG, CYCLIC (2 WEEKS ON AND ONE WEEK OFF STARTING 28MAR2016)
     Route: 048
     Dates: start: 201602
  5. SUTENT [Suspect]
     Active Substance: SUNITINIB MALATE
     Dosage: 37.5 MG, CYCLIC (TAKE ON (1) CAPSULE BY MOUTH ONCE A DAY. 2 WEEKS ON AND ONE WEEK OFF)
     Route: 048

REACTIONS (12)
  - Dizziness [Recovered/Resolved]
  - Ageusia [Unknown]
  - Lip swelling [Unknown]
  - Fatigue [Recovered/Resolved]
  - Thrombosis [Recovered/Resolved]
  - Gingival swelling [Unknown]
  - Gait disturbance [Recovering/Resolving]
  - Asthenia [Recovered/Resolved]
  - Pulmonary embolism [Not Recovered/Not Resolved]
  - Feeling abnormal [Recovering/Resolving]
  - Fatigue [Not Recovered/Not Resolved]
  - Mucosal inflammation [Recovered/Resolved]

NARRATIVE: CASE EVENT DATE: 201604
